FAERS Safety Report 7217746-2 (Version None)
Quarter: 2011Q1

REPORT INFORMATION
  Report Type: 
  Country: None (occurrence: None)
  Receive Date: 20110110
  Receipt Date: 20110106
  Transmission Date: 20110831
  Serious: Yes (Death, Hospitalization, Other)
  Sender: FDA-Public Use
  Company Number: US-ELI_LILLY_AND_COMPANY-US201101001633

PATIENT
  Age: 90 Year
  Sex: Male

DRUGS (2)
  1. PLAVIX [Concomitant]
  2. HUMALOG [Suspect]
     Dosage: UNK, UNKNOWN
     Dates: start: 20080101, end: 20101001

REACTIONS (4)
  - CEREBRAL HAEMORRHAGE [None]
  - NEOPLASM MALIGNANT [None]
  - HYPERGLYCAEMIA [None]
  - BRAIN OEDEMA [None]
